FAERS Safety Report 8988471 (Version 1)
Quarter: 2012Q4

REPORT INFORMATION
  Report Type: Spontaneous
  Country: US (occurrence: None)
  Receive Date: 20121224
  Receipt Date: 20121224
  Transmission Date: 20130627
  Serious: Yes (Other)
  Sender: FDA-Public Use
  Company Number: None

PATIENT
  Age: 32 Year
  Sex: Male
  Weight: 140.62 kg

DRUGS (2)
  1. ZIPRASIDONE HYDROCHLORIDE [Suspect]
  2. BUPROPION [Suspect]

REACTIONS (8)
  - Muscle hypertrophy [None]
  - Penile size reduced [None]
  - Pollakiuria [None]
  - Dysuria [None]
  - Unevaluable event [None]
  - Constipation [None]
  - Flatulence [None]
  - Anorectal disorder [None]
